FAERS Safety Report 9093602 (Version 1)
Quarter: 2013Q1

REPORT INFORMATION
  Report Type: Report from Study
  Country: PR (occurrence: PR)
  Receive Date: 20130131
  Receipt Date: 20130131
  Transmission Date: 20140127
  Serious: No
  Sender: FDA-Public Use
  Company Number: PR-ABBOTT-12P-131-0908209-00

PATIENT
  Age: 63 None
  Sex: Female
  Weight: 89.89 kg

DRUGS (22)
  1. HUMIRA [Suspect]
     Indication: RHEUMATOID ARTHRITIS
     Route: 058
     Dates: end: 201202
  2. HUMIRA [Suspect]
     Route: 058
     Dates: start: 201203, end: 20120605
  3. HUMIRA [Suspect]
     Route: 058
     Dates: start: 201206, end: 201207
  4. HUMIRA [Suspect]
     Route: 058
     Dates: end: 201210
  5. HUMIRA [Suspect]
     Route: 058
     Dates: start: 20121120
  6. JANUMET [Concomitant]
     Indication: DIABETES MELLITUS
     Dosage: 50MG/500MG BID
     Route: 048
  7. AMARYL [Concomitant]
     Indication: DIABETES MELLITUS
     Dosage: 1 TABLET DAILY
     Route: 048
  8. SYNTHROID [Concomitant]
     Indication: HYPOTHYROIDISM
     Dosage: 0.075MG 1 TABLET DAILY
     Route: 048
  9. NORVASC [Concomitant]
     Indication: HYPERTENSION
     Dosage: 1 TABLET DAILY
  10. COZAAR [Concomitant]
     Indication: HYPERTENSION
     Dosage: 1 TABLET DAILY
     Route: 048
  11. PROTONIX [Concomitant]
     Indication: PRODUCT USED FOR UNKNOWN INDICATION
     Dosage: 1 TABLET DAILY
     Route: 048
  12. METHOTREXATE [Concomitant]
     Indication: PRODUCT USED FOR UNKNOWN INDICATION
     Dosage: 6 TABLETS ONCE WEEKLY
     Route: 048
  13. CYMBALTA [Concomitant]
     Indication: PRODUCT USED FOR UNKNOWN INDICATION
     Dosage: 1 TABLET DAILY
     Route: 048
  14. ZETIA [Concomitant]
     Indication: HYPERLIPIDAEMIA
     Dosage: 1 TABLET DAILY
     Route: 048
  15. TRICOR [Concomitant]
     Indication: HYPERLIPIDAEMIA
     Dosage: 1 TABLET DAILY
     Route: 048
  16. NEURONTIN [Concomitant]
     Indication: PRODUCT USED FOR UNKNOWN INDICATION
     Dosage: 1 CAPSULE DAILY AM
     Route: 048
  17. NEURONTIN [Concomitant]
     Indication: PRODUCT USED FOR UNKNOWN INDICATION
     Dosage: 1 TABLET DAILY PM
     Route: 048
  18. ACTONEL [Concomitant]
     Indication: PRODUCT USED FOR UNKNOWN INDICATION
     Dosage: 150MG/MONTH
     Route: 048
  19. MULTIVITAMIN [Concomitant]
     Indication: VITAMIN SUPPLEMENTATION
     Dosage: DAILY
     Route: 048
  20. FOLIC ACID [Concomitant]
     Indication: PRODUCT USED FOR UNKNOWN INDICATION
     Dosage: 1 TABLET DAILY
     Route: 048
  21. VITAMIN D [Concomitant]
     Indication: VITAMIN SUPPLEMENTATION
     Dosage: D 1 SOFT GEL DAILY
     Route: 048
  22. CALTRATE 600+ D [Concomitant]
     Indication: SUPPLEMENTATION THERAPY
     Dosage: 1 TABLETS DAILY
     Route: 048

REACTIONS (7)
  - Cough [Recovered/Resolved]
  - Bronchitis [Recovered/Resolved]
  - Nasopharyngitis [Recovered/Resolved]
  - Herpes zoster [Recovered/Resolved]
  - Pharyngitis [Recovered/Resolved]
  - Urinary tract infection [Recovered/Resolved]
  - Ear infection [Recovered/Resolved]
